FAERS Safety Report 24970854 (Version 1)
Quarter: 2025Q1

REPORT INFORMATION
  Report Type: Spontaneous
  Country: FR (occurrence: FR)
  Receive Date: 20250214
  Receipt Date: 20250214
  Transmission Date: 20250409
  Serious: Yes (Other)
  Sender: RANBAXY
  Company Number: FR-AFSSAPS-RN2024001418

PATIENT
  Age: 47 Year
  Sex: Female

DRUGS (2)
  1. VALACYCLOVIR [Suspect]
     Active Substance: VALACYCLOVIR HYDROCHLORIDE
     Indication: Ophthalmic herpes zoster
     Dosage: 3 GRAM, DAILY
     Route: 048
     Dates: start: 20240929, end: 20241213
  2. TAMOXIFEN [Concomitant]
     Active Substance: TAMOXIFEN
     Indication: Breast cancer
     Route: 048
     Dates: start: 2022

REACTIONS (1)
  - Macrocytosis [Not Recovered/Not Resolved]

NARRATIVE: CASE EVENT DATE: 20241126
